FAERS Safety Report 10762490 (Version 3)
Quarter: 2015Q2

REPORT INFORMATION
  Report Type: Spontaneous
  Country: US (occurrence: US)
  Receive Date: 20150204
  Receipt Date: 20150408
  Transmission Date: 20150821
  Serious: Yes (Death)
  Sender: FDA-Public Use
  Company Number: US-OTSUKA-US-2015-10547

PATIENT

DRUGS (6)
  1. BUSULFEX [Suspect]
     Active Substance: BUSULFAN
     Dosage: 15 MG MILLIGRAM(S), Q6HR
     Route: 042
     Dates: end: 20090720
  2. BUSULFEX [Suspect]
     Active Substance: BUSULFAN
     Indication: BONE MARROW TRANSPLANT
     Dosage: 20 MG MILLIGRAM(S), Q6HR
     Route: 042
     Dates: start: 20090716
  3. CYCLOPHOSPHAMIDE. [Suspect]
     Active Substance: CYCLOPHOSPHAMIDE
     Indication: PRODUCT USED FOR UNKNOWN INDICATION
     Dosage: UNK
     Route: 065
     Dates: start: 20090720
  4. CYCLOSPORIN A [Concomitant]
     Active Substance: CYCLOSPORINE
     Indication: PRODUCT USED FOR UNKNOWN INDICATION
     Dosage: UNK
     Route: 065
  5. GENTAMICIN. [Concomitant]
     Active Substance: GENTAMICIN
     Indication: PRODUCT USED FOR UNKNOWN INDICATION
     Dosage: UNK
     Route: 065
  6. ACETAMINOPHEN. [Suspect]
     Active Substance: ACETAMINOPHEN
     Indication: PRODUCT USED FOR UNKNOWN INDICATION
     Dosage: UNK
     Route: 065
     Dates: start: 20090715

REACTIONS (5)
  - Drug interaction [Unknown]
  - Off label use [Unknown]
  - Pulmonary alveolar haemorrhage [Fatal]
  - Respiratory distress [Fatal]
  - Incorrect drug administration rate [Unknown]

NARRATIVE: CASE EVENT DATE: 2009
